FAERS Safety Report 10112378 (Version 1)
Quarter: 2014Q2

REPORT INFORMATION
  Report Type: Spontaneous
  Country: US (occurrence: US)
  Receive Date: 20140425
  Receipt Date: 20140425
  Transmission Date: 20141212
  Serious: Yes (Hospitalization, Other)
  Sender: FDA-Public Use
  Company Number: US-RB-066518-14

PATIENT
  Age: 70 Year
  Sex: Male

DRUGS (2)
  1. SUBOXONE FILM [Suspect]
     Indication: PAIN
     Dosage: SUBOXONE FILM
     Route: 060
     Dates: start: 2011, end: 2013
  2. BUPRENORPHINE NALOXONE GENERIC [Suspect]
     Indication: PAIN
     Route: 060
     Dates: start: 2011, end: 201403

REACTIONS (5)
  - Off label use [Recovered/Resolved]
  - Renal disorder [Not Recovered/Not Resolved]
  - Cellulitis [Recovered/Resolved]
  - Drug withdrawal syndrome [Recovered/Resolved]
  - Pain [Not Recovered/Not Resolved]
